FAERS Safety Report 11039895 (Version 2)
Quarter: 2015Q2

REPORT INFORMATION
  Report Type: Spontaneous
  Country: US (occurrence: US)
  Receive Date: 20150416
  Receipt Date: 20150525
  Transmission Date: 20150821
  Serious: No
  Sender: FDA-Public Use
  Company Number: US-JNJFOC-20140116945

PATIENT
  Sex: Female

DRUGS (2)
  1. L-TRYPTOPHAN [Concomitant]
     Active Substance: TRYPTOPHAN
     Route: 065
  2. XARELTO [Suspect]
     Active Substance: RIVAROXABAN
     Indication: PRODUCT USED FOR UNKNOWN INDICATION
     Route: 048
     Dates: start: 201303

REACTIONS (3)
  - Premenstrual syndrome [Unknown]
  - Serum serotonin decreased [Unknown]
  - Hormone level abnormal [Unknown]
